FAERS Safety Report 9464932 (Version 1)
Quarter: 2013Q3

REPORT INFORMATION
  Report Type: Spontaneous
  Country: DE (occurrence: DE)
  Receive Date: 20130819
  Receipt Date: 20130819
  Transmission Date: 20140515
  Serious: Yes (Hospitalization, Other)
  Sender: FDA-Public Use
  Company Number: PHHY2013DE087947

PATIENT
  Age: 1 Day
  Sex: Male
  Weight: 1.99 kg

DRUGS (2)
  1. TEGRETAL [Suspect]
     Indication: EPILEPSY
     Dosage: 400 MG, BID
     Route: 064
     Dates: start: 20080707, end: 20090225
  2. FOLSAEURE [Concomitant]
     Dosage: UNK UKN, UNK
     Route: 064

REACTIONS (7)
  - Premature baby [Recovered/Resolved]
  - Apnoea neonatal [Recovered/Resolved]
  - Hyperbilirubinaemia neonatal [Recovered/Resolved]
  - Hypothermia [Recovered/Resolved]
  - Bradycardia [Recovered/Resolved]
  - Neonatal respiratory distress syndrome [Recovered/Resolved]
  - Feeding disorder neonatal [Recovered/Resolved]
